FAERS Safety Report 13333803 (Version 1)
Quarter: 2017Q1

REPORT INFORMATION
  Report Type: Spontaneous
  Country: US (occurrence: US)
  Receive Date: 20170314
  Receipt Date: 20170314
  Transmission Date: 20170428
  Serious: No
  Sender: FDA-Public Use
  Company Number: US-DEPOMED, INC.-US-2017DEP000059

PATIENT

DRUGS (1)
  1. GRALISE [Suspect]
     Active Substance: GABAPENTIN
     Indication: POLYNEUROPATHY
     Dosage: 300 MG, QD
     Route: 048
     Dates: start: 20161104, end: 20170106

REACTIONS (4)
  - Product use issue [Recovered/Resolved]
  - Drug titration error [Unknown]
  - Asthenia [Unknown]
  - Lip exfoliation [Unknown]

NARRATIVE: CASE EVENT DATE: 20161104
